FAERS Safety Report 5359774-8 (Version None)
Quarter: 2007Q2

REPORT INFORMATION
  Report Type: 
  Country: None (occurrence: None)
  Receive Date: 20070616
  Receipt Date: 20070611
  Transmission Date: 20071010
  Serious: Yes (Death, Other)
  Sender: FDA-Public Use
  Company Number: JP-PFIZER INC-2007048274

PATIENT
  Age: 71 Year
  Sex: Female

DRUGS (4)
  1. VIAGRA [Suspect]
     Indication: PULMONARY HYPERTENSION
     Dosage: TEXT:TDD:50MG
  2. METHYLPREDNISOLONE 16MG TAB [Suspect]
     Indication: ILL-DEFINED DISORDER
  3. NITRIC OXIDE [Suspect]
     Indication: ILL-DEFINED DISORDER
  4. EPOPROSTENOL SODIUM [Suspect]
     Indication: ILL-DEFINED DISORDER

REACTIONS (1)
  - DEATH [None]
